FAERS Safety Report 23266445 (Version 4)
Quarter: 2024Q1

REPORT INFORMATION
  Report Type: Spontaneous
  Country: US (occurrence: US)
  Receive Date: 20231206
  Receipt Date: 20240229
  Transmission Date: 20240409
  Serious: Yes (Disabling, Other)
  Sender: FDA-Public Use
  Company Number: US-REGENERON PHARMACEUTICALS, INC.-2023-147034

PATIENT
  Sex: Male

DRUGS (2)
  1. EYLEA [Suspect]
     Active Substance: AFLIBERCEPT
     Indication: Diabetic retinopathy
     Dosage: UNK, EVERY 3 MONTHS, (FORMULATION: UNKNOWN)
     Route: 031
     Dates: start: 2023
  2. EYLEA [Suspect]
     Active Substance: AFLIBERCEPT
     Dosage: UNK, Q6W (FORMULATION: UNKNOWN)
     Route: 031
     Dates: start: 2023

REACTIONS (9)
  - Blindness unilateral [Recovering/Resolving]
  - Eye haemorrhage [Recovered/Resolved]
  - Eye infection [Recovering/Resolving]
  - Injection site pain [Unknown]
  - Road traffic accident [Unknown]
  - Loss of personal independence in daily activities [Unknown]
  - Impaired driving ability [Unknown]
  - Ocular hyperaemia [Recovered/Resolved]
  - Eye pain [Unknown]

NARRATIVE: CASE EVENT DATE: 20230101
